FAERS Safety Report 9751833 (Version 6)
Quarter: 2015Q1

REPORT INFORMATION
  Report Type: Report from Study
  Country: JP (occurrence: JP)
  Receive Date: 20131213
  Receipt Date: 20150306
  Transmission Date: 20150721
  Serious: Yes (Hospitalization, Disabling)
  Sender: FDA-Public Use
  Company Number: JP-AMGEN-JPNCT2013087466

PATIENT
  Age: 42 Year
  Sex: Female
  Weight: 41 kg

DRUGS (15)
  1. PACLITAXEL. [Concomitant]
     Active Substance: PACLITAXEL
     Dosage: UNK
     Route: 065
     Dates: start: 20101115, end: 20130814
  2. DECADRON [Concomitant]
     Active Substance: DEXAMETHASONE
     Dosage: UNK
     Route: 065
     Dates: start: 2010
  3. GASTER [Concomitant]
     Active Substance: FAMOTIDINE
     Dosage: 40 MG, UNK
     Route: 048
     Dates: start: 20120928
  4. SENNOSIDE A+B [Concomitant]
     Active Substance: SENNOSIDES A AND B
     Dosage: 24 MG, QD
     Route: 048
  5. OXYCONTIN [Concomitant]
     Active Substance: OXYCODONE HYDROCHLORIDE
     Dosage: 60 MG, QD
     Route: 048
     Dates: start: 20100512
  6. DENOSUMAB [Suspect]
     Active Substance: DENOSUMAB
     Indication: METASTASES TO BONE
     Dosage: 120 MG, UNK
     Route: 058
     Dates: start: 20121016, end: 20130814
  7. ONEALFA [Concomitant]
     Active Substance: ALFACALCIDOL
     Dosage: 1 MUG, QD
     Route: 048
     Dates: start: 20121019
  8. MAGMITT [Concomitant]
     Active Substance: MAGNESIUM OXIDE
     Dosage: 990 MG, QD
     Route: 048
  9. PURSENNIDE                         /00571901/ [Concomitant]
     Dosage: UNK
     Route: 048
  10. CALCICOL [Concomitant]
     Active Substance: CALCIUM GLUCONATE
     Dosage: 5 G, UNK
     Route: 048
     Dates: start: 20121016
  11. AVASTIN [Concomitant]
     Active Substance: BEVACIZUMAB
     Dosage: UNK
     Route: 065
     Dates: start: 20120213, end: 20130814
  12. EMEND [Concomitant]
     Active Substance: APREPITANT
     Dosage: 80 MG, QD
     Route: 048
  13. ZANTAC [Concomitant]
     Active Substance: RANITIDINE HYDROCHLORIDE
     Dosage: 300 MG, UNK
     Route: 048
     Dates: start: 20120404, end: 20120811
  14. NOLVADEX                           /00388701/ [Concomitant]
     Active Substance: TAMOXIFEN CITRATE
     Dosage: 20 MG, UNK
     Route: 048
     Dates: start: 1998
  15. ZOMETA [Concomitant]
     Active Substance: ZOLEDRONIC ACID
     Indication: PROPHYLAXIS
     Dosage: 3-4 WEEK INTERVALS EVERY
     Route: 042
     Dates: start: 2005, end: 20120810

REACTIONS (1)
  - Atypical femur fracture [Recovered/Resolved with Sequelae]

NARRATIVE: CASE EVENT DATE: 20130918
